FAERS Safety Report 13697099 (Version 1)
Quarter: 2017Q2

REPORT INFORMATION
  Report Type: Spontaneous
  Country: DE (occurrence: DE)
  Receive Date: 20170628
  Receipt Date: 20170628
  Transmission Date: 20170830
  Serious: Yes (Hospitalization, Congenital Anomaly, Other)
  Sender: FDA-Public Use
  Company Number: DE-PURDUE PHARMA-GBR-2017-0046164

PATIENT
  Age: 1 Day
  Sex: Male
  Weight: 3.82 kg

DRUGS (4)
  1. HYDROMORPHONE HYDROCHLORIDE. [Suspect]
     Active Substance: HYDROMORPHONE HYDROCHLORIDE
     Dosage: 12 MG, DAILY
     Route: 064
     Dates: start: 20151227
  2. HYDROMORPHONE HYDROCHLORIDE. [Suspect]
     Active Substance: HYDROMORPHONE HYDROCHLORIDE
     Indication: PAIN
     Dosage: 8 MG, DAILY
     Route: 064
     Dates: end: 20161007
  3. NOVOPULMON [Suspect]
     Active Substance: BUDESONIDE
     Indication: ASTHMA
     Dosage: 400 MCG, BID
     Route: 064
     Dates: start: 20151227, end: 20161007
  4. FOLIC ACID. [Concomitant]
     Active Substance: FOLIC ACID
     Indication: PROPHYLAXIS OF NEURAL TUBE DEFECT
     Dosage: 0.4 MG, DAILY
     Route: 064
     Dates: start: 20151227, end: 20161007

REACTIONS (4)
  - Ventricular septal defect [Recovered/Resolved]
  - Drug withdrawal syndrome neonatal [Recovered/Resolved]
  - Congenital choroid plexus cyst [Unknown]
  - Foetal exposure during pregnancy [Unknown]

NARRATIVE: CASE EVENT DATE: 20151227
